FAERS Safety Report 5141394-1 (Version None)
Quarter: 2006Q4

REPORT INFORMATION
  Report Type: 
  Country: None (occurrence: None)
  Receive Date: 20061101
  Receipt Date: 20061017
  Transmission Date: 20070319
  Serious: Yes (Hospitalization)
  Sender: FDA-Public Use
  Company Number: JP-JPN-A200604250

PATIENT
  Age: 40 Year
  Sex: Male
  Weight: 71 kg

DRUGS (13)
  1. PAXIL [Suspect]
     Indication: DEPRESSION
     Route: 048
     Dates: start: 20060728, end: 20060911
  2. HALCION [Concomitant]
     Indication: DEPRESSION
     Route: 048
  3. DEPAS [Concomitant]
     Indication: DEPRESSION
     Dosage: 2MG PER DAY
     Route: 048
     Dates: end: 20060911
  4. EURODIN [Concomitant]
     Indication: DEPRESSION
     Route: 048
  5. GASTER D [Concomitant]
     Indication: GASTRITIS
     Dosage: 20MG PER DAY
     Route: 048
     Dates: end: 20060806
  6. ZANTAC [Concomitant]
     Indication: GASTRITIS
     Dosage: 150MG PER DAY
     Route: 048
     Dates: start: 20060807
  7. GASMOTIN [Concomitant]
     Indication: GASTRITIS
     Dosage: 45MG PER DAY
     Route: 048
     Dates: start: 20060825, end: 20060906
  8. BEZATATE [Concomitant]
     Dosage: 200MG PER DAY
     Route: 048
     Dates: start: 20060825
  9. LORAZEPAM [Concomitant]
     Indication: ANXIETY
     Dosage: 1MG PER DAY
     Route: 048
     Dates: start: 20060807, end: 20060911
  10. VEGETAMIN-B [Concomitant]
     Indication: MANIA
     Dates: start: 20060915, end: 20060922
  11. VEGETAMIN A [Concomitant]
     Indication: MANIA
     Dates: start: 20060923
  12. LUVOX [Concomitant]
     Indication: DEPRESSION
     Route: 048
     Dates: start: 20060912, end: 20060915
  13. LIMAS [Concomitant]
     Indication: MANIA
     Dosage: 900MG PER DAY
     Route: 048
     Dates: start: 20060915

REACTIONS (12)
  - ACCIDENTAL OVERDOSE [None]
  - AGGRESSION [None]
  - DIZZINESS [None]
  - HEADACHE [None]
  - HYPOAESTHESIA [None]
  - IMPULSIVE BEHAVIOUR [None]
  - INSOMNIA [None]
  - IRRITABILITY [None]
  - MANIA [None]
  - NAUSEA [None]
  - PARAESTHESIA [None]
  - SOMNOLENCE [None]
